FAERS Safety Report 8576248-1 (Version None)
Quarter: 2012Q3

REPORT INFORMATION
  Report Type: 
  Country: None (occurrence: None)
  Receive Date: 20120807
  Receipt Date: 20120727
  Transmission Date: 20120928
  Serious: Yes (Hospitalization, Other)
  Sender: FDA-Public Use
  Company Number: US-BAYER-2011-062477

PATIENT
  Age: 18 Year
  Sex: Female
  Weight: 66.213 kg

DRUGS (15)
  1. TRIAMTERENE AND HYDROCHLOROTHIAZIDE [Concomitant]
     Dosage: 37.5/ 25 MG
  2. SEROQUEL [Concomitant]
     Indication: ABNORMAL BEHAVIOUR
  3. FLUOXETINE HCL [Concomitant]
     Indication: ABNORMAL BEHAVIOUR
  4. ORAL CONTRACEPTIVE NOS [Concomitant]
  5. METRONIDAZOLE [Concomitant]
     Route: 067
  6. CALCIUM W/VITAMIN D NOS [Concomitant]
     Dosage: UNK
     Dates: start: 20090905
  7. FLUOXETINE HCL [Concomitant]
     Indication: PREMENSTRUAL SYNDROME
  8. PREVACID [Concomitant]
     Dosage: 30 MG, UNK
  9. FISH OIL [Concomitant]
     Dosage: UNK UNK, BID
     Dates: start: 20090905
  10. YAZ [Suspect]
     Indication: PREMENSTRUAL SYNDROME
     Dosage: UNK
     Dates: start: 20081201, end: 20090901
  11. SEROQUEL [Concomitant]
     Indication: AGGRESSION
  12. FLUCONAZOLE [Concomitant]
     Dosage: 150 MG, UNK
     Dates: start: 20090814
  13. CONCERTA [Concomitant]
     Indication: ATTENTION DEFICIT/HYPERACTIVITY DISORDER
  14. SEROQUEL [Concomitant]
     Indication: MOOD SWINGS
  15. MULTI-VITAMIN [Concomitant]
     Dosage: UNK
     Dates: start: 20090905

REACTIONS (4)
  - INJURY [None]
  - PULMONARY EMBOLISM [None]
  - CHOLECYSTECTOMY [None]
  - DEEP VEIN THROMBOSIS [None]
